FAERS Safety Report 22787479 (Version 6)
Quarter: 2025Q4

REPORT INFORMATION
  Report Type: Report from Study
  Country: US (occurrence: US)
  Receive Date: 20230804
  Receipt Date: 20251125
  Transmission Date: 20260117
  Serious: Yes (Other)
  Sender: ABBVIE
  Company Number: US-ABBVIE-5353881

PATIENT
  Age: 72 Year
  Sex: Male
  Weight: 102.05 kg

DRUGS (1)
  1. HUMIRA [Suspect]
     Active Substance: ADALIMUMAB
     Indication: Rheumatoid arthritis
     Dosage: CITRATE FREE?FORM STRENGTH- 40 MILLIGRAM
     Route: 058
     Dates: start: 200708

REACTIONS (3)
  - Age-related macular degeneration [Not Recovered/Not Resolved]
  - Deafness [Unknown]
  - Off label use [Unknown]

NARRATIVE: CASE EVENT DATE: 20110101
